FAERS Safety Report 17192550 (Version 2)
Quarter: 2021Q3

REPORT INFORMATION
  Report Type: Spontaneous
  Country: PT (occurrence: PT)
  Receive Date: 20191223
  Receipt Date: 20210924
  Transmission Date: 20211014
  Serious: Yes (Other)
  Sender: FDA-Public Use
  Company Number: PT-ASTRAZENECA-2019SF82896

PATIENT
  Age: 20 Year
  Sex: Male

DRUGS (3)
  1. ASPIRIN. [Concomitant]
     Active Substance: ASPIRIN
     Indication: PRODUCT USED FOR UNKNOWN INDICATION
     Dosage: UNK
     Route: 065
  2. BUDESONIDE/FORMOTEROL [Suspect]
     Active Substance: BUDESONIDE\FORMOTEROL
     Indication: ASTHMA
     Dosage: 160/4.5 MCG IN SOS UNKNOWN
     Route: 055
  3. IBUPROFEN. [Concomitant]
     Active Substance: IBUPROFEN
     Indication: ASTHMA
     Dosage: UNK
     Route: 065

REACTIONS (10)
  - Paranasal sinus mucosal hypertrophy [Unknown]
  - Anaphylactic reaction [Unknown]
  - Eosinophilia [Unknown]
  - Nasal obstruction [Recovering/Resolving]
  - Drug intolerance [Unknown]
  - Sinusitis [Unknown]
  - Nasal polyps [Unknown]
  - Bronchial disorder [Recovering/Resolving]
  - Anosmia [Not Recovered/Not Resolved]
  - Off label use [Unknown]
